FAERS Safety Report 5561039-6 (Version None)
Quarter: 2007Q4

REPORT INFORMATION
  Report Type: 
  Country: None (occurrence: None)
  Receive Date: 20071215
  Receipt Date: 20071127
  Transmission Date: 20080405
  Serious: No
  Sender: FDA-Public Use
  Company Number: US-ABBOTT-07P-163-0426767-00

PATIENT
  Age: 17 Year
  Sex: Male

DRUGS (3)
  1. HUMIRA [Suspect]
     Indication: CROHN'S DISEASE
     Route: 058
     Dates: start: 20061101, end: 20070501
  2. HUMIRA [Suspect]
     Route: 058
     Dates: start: 20070501, end: 20070901
  3. HUMIRA [Suspect]
     Route: 058
     Dates: start: 20070901

REACTIONS (2)
  - DRUG INEFFECTIVE [None]
  - THERAPEUTIC RESPONSE DECREASED [None]
